FAERS Safety Report 9580043 (Version 1)
Quarter: 2013Q3

REPORT INFORMATION
  Report Type: Spontaneous
  Country: US (occurrence: None)
  Receive Date: 20130930
  Receipt Date: 20130930
  Transmission Date: 20140515
  Serious: Yes (Life-Threatening)
  Sender: FDA-Public Use
  Company Number: None

PATIENT
  Age: 40 Year
  Sex: Female
  Weight: 83.92 kg

DRUGS (1)
  1. MEANINGFUL BEAUTY SPF 20 [Suspect]
     Indication: PSORIASIS
     Dosage: 1- PUMPS DAIL APPLIED TO SURFACE OF THE SKIN
     Dates: start: 20130823, end: 20130909

REACTIONS (9)
  - Cough [None]
  - Lymphadenopathy [None]
  - Throat tightness [None]
  - Pharyngeal haemorrhage [None]
  - Sinusitis [None]
  - Malaise [None]
  - Wheezing [None]
  - Swelling face [None]
  - Local swelling [None]
